FAERS Safety Report 5953987-X (Version None)
Quarter: 2008Q4

REPORT INFORMATION
  Report Type: 
  Country: None (occurrence: None)
  Receive Date: 20081114
  Receipt Date: 20081105
  Transmission Date: 20090506
  Serious: Yes (Other)
  Sender: FDA-Public Use
  Company Number: US-ABBOTT-08P-163-0485882-00

PATIENT
  Age: 33 Year
  Sex: Female

DRUGS (2)
  1. KALETRA [Suspect]
     Indication: DRUG USE FOR UNKNOWN INDICATION
     Dosage: 800/200MG DAILY
     Dates: start: 20080812
  2. LAMIVUDINE + ZIDOVUDINE [Suspect]
     Indication: DRUG USE FOR UNKNOWN INDICATION
     Dosage: 300/600
     Route: 048
     Dates: start: 20080812

REACTIONS (13)
  - ABDOMINAL PAIN [None]
  - BREECH PRESENTATION [None]
  - CHEST PAIN [None]
  - DYSPNOEA [None]
  - NAUSEA [None]
  - PALPITATIONS [None]
  - PREMATURE LABOUR [None]
  - PREMATURE RUPTURE OF MEMBRANES [None]
  - SCAR [None]
  - UTERINE LEIOMYOMA [None]
  - UTERINE RUPTURE [None]
  - VAGINAL DISCHARGE [None]
  - VOMITING [None]
